FAERS Safety Report 4586552-X (Version None)
Quarter: 2005Q1

REPORT INFORMATION
  Report Type: 
  Country: None (occurrence: None)
  Receive Date: 20050218
  Receipt Date: 20040316
  Transmission Date: 20050727
  Serious: No
  Sender: FDA-Public Use
  Company Number: US-BRISTOL-MYERS SQUIBB COMPANY-12534756

PATIENT
  Age: 52 Year
  Sex: Female
  Weight: 59 kg

DRUGS (6)
  1. TAXOL [Suspect]
     Indication: OVARIAN CANCER
     Dosage: IN 500 ML NORMAL SALINE IN NITROGLYCERIN INFUSION
     Route: 042
  2. TAGAMET [Concomitant]
     Indication: PREMEDICATION
     Route: 048
  3. DECADRON [Concomitant]
     Indication: PREMEDICATION
     Route: 048
  4. BENADRYL [Concomitant]
     Indication: PREMEDICATION
     Route: 042
  5. ATIVAN [Concomitant]
     Indication: PREMEDICATION
     Route: 042
  6. ANZEMET [Concomitant]
     Indication: PREMEDICATION
     Route: 042

REACTIONS (1)
  - HYPERSENSITIVITY [None]
